FAERS Safety Report 18169361 (Version 1)
Quarter: 2020Q3

REPORT INFORMATION
  Report Type: Spontaneous
  Country: JP (occurrence: JP)
  Receive Date: 20200818
  Receipt Date: 20200818
  Transmission Date: 20201103
  Serious: Yes (Death, Hospitalization)
  Sender: FDA-Public Use
  Company Number: JP-ELI_LILLY_AND_COMPANY-JP202008006450

PATIENT
  Age: 77 Year
  Sex: Male
  Weight: 164 kg

DRUGS (13)
  1. SELEXIPAG [Suspect]
     Active Substance: SELEXIPAG
     Dosage: 0.8 MG
     Route: 048
     Dates: start: 20180206, end: 20180320
  2. NEXIUM MUPS [ESOMEPRAZOLE MAGNESIUM] [Concomitant]
     Active Substance: ESOMEPRAZOLE MAGNESIUM
     Indication: VARICES OESOPHAGEAL
     Dosage: MG
     Dates: start: 20170510, end: 20190307
  3. SPIRONOLACTONE. [Concomitant]
     Active Substance: SPIRONOLACTONE
     Indication: PRODUCT USED FOR UNKNOWN INDICATION
     Dosage: 25 MG
     Dates: start: 20180106, end: 20190307
  4. FUROSEMIDE. [Concomitant]
     Active Substance: FUROSEMIDE
     Indication: PRODUCT USED FOR UNKNOWN INDICATION
     Dosage: 20 MG, UNKNOWN
     Dates: start: 20141015, end: 20190307
  5. ZOSYN [Concomitant]
     Active Substance: PIPERACILLIN SODIUM\TAZOBACTAM SODIUM
     Indication: PNEUMONIA
     Dosage: 2 G, UNKNOWN
     Dates: start: 20190218, end: 20190307
  6. OPSUMIT [Concomitant]
     Active Substance: MACITENTAN
     Indication: PULMONARY ARTERIAL HYPERTENSION
     Dosage: 10 MG, UNKNOWN
     Dates: start: 20160810, end: 20190307
  7. SELEXIPAG [Suspect]
     Active Substance: SELEXIPAG
     Indication: PULMONARY ARTERIAL HYPERTENSION
     Dosage: 0.4 MG, DAILY
     Route: 048
     Dates: start: 20180124, end: 20180205
  8. WARFARIN POTASSIUM [Concomitant]
     Active Substance: WARFARIN POTASSIUM
     Indication: ATRIAL FIBRILLATION
     Dosage: 3 MG, UNKNOWN
     Dates: start: 20090610, end: 20190307
  9. TENORMIN [Concomitant]
     Active Substance: ATENOLOL
     Indication: ATRIAL FIBRILLATION
     Dosage: 50 MG, UNKNOWN
     Dates: start: 20090610, end: 20190307
  10. ADCIRCA [Suspect]
     Active Substance: TADALAFIL
     Indication: PULMONARY ARTERIAL HYPERTENSION
     Dosage: 40 MG, DAILY
     Route: 065
     Dates: start: 20141015, end: 20190307
  11. SELEXIPAG [Suspect]
     Active Substance: SELEXIPAG
     Dosage: 0.4 UNK
     Route: 048
     Dates: start: 20180321, end: 20190307
  12. VANCOMYCIN HYDROCHLORIDE. [Concomitant]
     Active Substance: VANCOMYCIN HYDROCHLORIDE
     Indication: PNEUMONIA
     Dosage: 2 G, UNKNOWN
     Dates: start: 20190227, end: 20190307
  13. CEFEPIME HYDROCHLORIDE. [Concomitant]
     Active Substance: CEFEPIME HYDROCHLORIDE
     Indication: PNEUMONIA
     Dosage: 2 G, UNKNOWN
     Dates: start: 20190227, end: 20190307

REACTIONS (6)
  - Pulmonary hypertension [Fatal]
  - Pneumonia [Fatal]
  - Pneumonia bacterial [Recovered/Resolved]
  - Nasal congestion [Recovered/Resolved]
  - Pain in jaw [Recovered/Resolved]
  - Headache [Recovered/Resolved]

NARRATIVE: CASE EVENT DATE: 201802
